FAERS Safety Report 11252223 (Version 1)
Quarter: 2015Q3

REPORT INFORMATION
  Report Type: Spontaneous
  Country: US (occurrence: US)
  Receive Date: 20150708
  Receipt Date: 20150708
  Transmission Date: 20151125
  Serious: No
  Sender: FDA-Public Use
  Company Number: US-ELI_LILLY_AND_COMPANY-US201306001175

PATIENT
  Age: 63 Year
  Sex: Female

DRUGS (1)
  1. AMYVID [Suspect]
     Active Substance: FLORBETAPIR F-18
     Dosage: 1 DF, OTHER
     Dates: start: 20130603

REACTIONS (1)
  - Wrong drug administered [Recovered/Resolved]
